FAERS Safety Report 9196718 (Version 2)
Quarter: 2013Q2

REPORT INFORMATION
  Report Type: Spontaneous
  Country: US (occurrence: US)
  Receive Date: 20130328
  Receipt Date: 20130520
  Transmission Date: 20140414
  Serious: Yes (Other)
  Sender: FDA-Public Use
  Company Number: US-AMGEN-USASP2013019426

PATIENT
  Age: 72 Year
  Sex: Female
  Weight: 73.47 kg

DRUGS (2)
  1. PROLIA [Suspect]
     Indication: OSTEOPOROSIS POSTMENOPAUSAL
     Dosage: ONE DOSE
     Dates: start: 201209
  2. SYNTHROID [Concomitant]

REACTIONS (10)
  - Cerebrovascular accident [Unknown]
  - Hypertensive emergency [Recovered/Resolved]
  - Decreased activity [Unknown]
  - Amnesia [Recovered/Resolved]
  - Aphasia [Unknown]
  - Mental status changes [Recovered/Resolved]
  - Personality change [Recovered/Resolved]
  - Abdominal pain [Recovered/Resolved]
  - Nausea [Recovered/Resolved]
  - Vomiting [Recovered/Resolved]
